FAERS Safety Report 13523762 (Version 1)
Quarter: 2017Q2

REPORT INFORMATION
  Report Type: Spontaneous
  Country: US (occurrence: US)
  Receive Date: 20170508
  Receipt Date: 20170508
  Transmission Date: 20170830
  Serious: No
  Sender: FDA-Public Use
  Company Number: US-VIFOR (INTERNATIONAL) INC.-VIT-2017-03096

PATIENT
  Sex: Female

DRUGS (27)
  1. ATORVASTATIN CALCIUM. [Concomitant]
     Active Substance: ATORVASTATIN CALCIUM
  2. DULOXETINE HYDROCHLORIDE. [Concomitant]
     Active Substance: DULOXETINE HYDROCHLORIDE
  3. HYDRALAZINE HYDROCHLORIDE. [Concomitant]
     Active Substance: HYDRALAZINE HYDROCHLORIDE
  4. PARACETAMOL/HYDROCODONE [Concomitant]
  5. ERGOCALCIFEROL. [Concomitant]
     Active Substance: ERGOCALCIFEROL
  6. ELIQUIS [Concomitant]
     Active Substance: APIXABAN
  7. FUROSEMIDE. [Concomitant]
     Active Substance: FUROSEMIDE
  8. MIRTAZAPINE. [Concomitant]
     Active Substance: MIRTAZAPINE
  9. JANUVIA [Concomitant]
     Active Substance: SITAGLIPTIN PHOSPHATE
  10. MICATIN [Concomitant]
     Active Substance: MICONAZOLE NITRATE
  11. RANEXA [Concomitant]
     Active Substance: RANOLAZINE
  12. SUCRALFATE. [Concomitant]
     Active Substance: SUCRALFATE
  13. SYMBICORT [Concomitant]
     Active Substance: BUDESONIDE\FORMOTEROL FUMARATE DIHYDRATE
  14. VELTASSA [Suspect]
     Active Substance: PATIROMER
     Indication: HYPERKALAEMIA
     Route: 048
  15. HYDROCORTISONE. [Concomitant]
     Active Substance: HYDROCORTISONE
  16. ISOSORBIDE. [Concomitant]
     Active Substance: ISOSORBIDE
  17. LEVOTHYROXINE SODIUM. [Concomitant]
     Active Substance: LEVOTHYROXINE SODIUM
  18. FERROUS SULFATE. [Concomitant]
     Active Substance: FERROUS SULFATE
  19. NITROSTAT [Concomitant]
     Active Substance: NITROGLYCERIN
  20. FLUTICASONE PROPIONATE. [Concomitant]
     Active Substance: FLUTICASONE PROPIONATE
  21. LIDOCAINE. [Concomitant]
     Active Substance: LIDOCAINE
  22. PANTOPRAZOLE SODIUM SESQUIHYDRATE [Concomitant]
     Active Substance: PANTOPRAZOLE SODIUM
  23. BIOTENE MOISTURIZING MOUTH [Concomitant]
  24. CLONIDINE HYDROCHLORIDE. [Concomitant]
     Active Substance: CLONIDINE HYDROCHLORIDE
  25. DOCUSATE SODIUM. [Concomitant]
     Active Substance: DOCUSATE SODIUM
  26. DOXAZOSIN MESILATE [Concomitant]
     Active Substance: DOXAZOSIN MESYLATE
  27. METOPROLOL TARTRATE. [Concomitant]
     Active Substance: METOPROLOL TARTRATE

REACTIONS (1)
  - Diarrhoea [Unknown]
